FAERS Safety Report 23291361 (Version 1)
Quarter: 2023Q4

REPORT INFORMATION
  Report Type: Spontaneous
  Country: NL (occurrence: NL)
  Receive Date: 20231213
  Receipt Date: 20231213
  Transmission Date: 20240109
  Serious: Yes (Other)
  Sender: FDA-Public Use
  Company Number: None

PATIENT
  Age: 33 Year
  Sex: Male
  Weight: 95 kg

DRUGS (1)
  1. INFLIXIMAB [Suspect]
     Active Substance: INFLIXIMAB
     Indication: Crohn^s disease
     Dosage: 1 PIECE EVERY 2 WEEKS, INJVLST 120 MG/ML;
     Route: 065
     Dates: start: 20190906

REACTIONS (3)
  - Paraesthesia [Unknown]
  - Hypoaesthesia [Unknown]
  - Product use issue [Unknown]
